FAERS Safety Report 9680572 (Version 3)
Quarter: 2014Q1

REPORT INFORMATION
  Report Type: Spontaneous
  Country: US (occurrence: US)
  Receive Date: 20131111
  Receipt Date: 20140117
  Transmission Date: 20141002
  Serious: No
  Sender: FDA-Public Use
  Company Number: US-PFIZER INC-2013316337

PATIENT
  Age: 83 Year
  Sex: Male

DRUGS (8)
  1. INLYTA [Suspect]
     Indication: RENAL CANCER
     Dosage: 1 MG, 2X/DAY (1 TABLET)
     Dates: start: 201309
  2. INLYTA [Suspect]
     Dosage: 1 MG, 2X/DAY
     Route: 048
     Dates: start: 20131001
  3. INLYTA [Suspect]
     Dosage: 2 MG, 2X/DAY (TWO TABLETS OF 1 MG TWICE DAILY)
  4. ASPIRIN [Concomitant]
     Dosage: 81 MG, DAILY
  5. LOSARTAN [Concomitant]
     Dosage: 100 MG, DAILY
  6. ZOLPIDEM [Concomitant]
     Dosage: 5 MG, 1X/DAY (QHS)
  7. AMLODIPINE [Concomitant]
     Dosage: 5 MG, 2X/DAY
  8. PRAVASTATIN [Concomitant]
     Dosage: 20 MG, 1X/DAY (QHS)

REACTIONS (11)
  - Diarrhoea [Not Recovered/Not Resolved]
  - Constipation [Not Recovered/Not Resolved]
  - Abdominal pain [Not Recovered/Not Resolved]
  - Pain in extremity [Not Recovered/Not Resolved]
  - Oral pain [Unknown]
  - Tooth disorder [Unknown]
  - Disease progression [Unknown]
  - Renal cancer [Unknown]
  - Hyperkeratosis [Unknown]
  - Gingival disorder [Unknown]
  - Dysgeusia [Unknown]
